FAERS Safety Report 6033449-4 (Version None)
Quarter: 2009Q1

REPORT INFORMATION
  Report Type: 
  Country: None (occurrence: None)
  Receive Date: 20090109
  Receipt Date: 20090104
  Transmission Date: 20090719
  Serious: Yes (Hospitalization, Other)
  Sender: FDA-Public Use
  Company Number: KR-ABBOTT-08P-090-0494297-00

PATIENT
  Age: 47 Year
  Sex: Male

DRUGS (6)
  1. HUMIRA [Suspect]
     Indication: ANKYLOSING SPONDYLITIS
     Dates: start: 20081202, end: 20081218
  2. SULFASALAZINE [Concomitant]
     Indication: RHEUMATOID ARTHRITIS
     Dosage: 2000 MG DAILY
     Route: 048
  3. SULFASALAZINE [Concomitant]
     Indication: PROPHYLAXIS
  4. CELECOXIB [Concomitant]
     Indication: ANTIINFLAMMATORY THERAPY
     Dosage: 200 MG DAILY
     Route: 048
  5. PREDNISOLONE [Concomitant]
     Indication: ANTIINFLAMMATORY THERAPY
     Dosage: 5 MG DAILY
     Route: 048
  6. ISONICOTINIC ACID HYDRAZIDE [Concomitant]
     Indication: LATENT TUBERCULOSIS
     Dosage: 300 MG DAILY
     Route: 048
     Dates: start: 20081103

REACTIONS (4)
  - DELIRIUM [None]
  - DEMENTIA [None]
  - NASOPHARYNGITIS [None]
  - PNEUMONIA [None]
